FAERS Safety Report 19272597 (Version 2)
Quarter: 2021Q3

REPORT INFORMATION
  Report Type: Report from Study
  Country: None (occurrence: DE)
  Receive Date: 20210519
  Receipt Date: 20210929
  Transmission Date: 20211014
  Serious: Yes (Death, Hospitalization)
  Sender: FDA-Public Use
  Company Number: DE-ABBVIE-21K-062-3858847-00

PATIENT
  Age: 83 Year
  Sex: Male

DRUGS (4)
  1. TASMAR [Concomitant]
     Active Substance: TOLCAPONE
     Indication: PRODUCT USED FOR UNKNOWN INDICATION
  2. RIVASTIGMIN [Concomitant]
     Active Substance: RIVASTIGMINE
     Indication: PRODUCT USED FOR UNKNOWN INDICATION
  3. DUODOPA [Suspect]
     Active Substance: CARBIDOPA\LEVODOPA
     Dosage: MD 3 ML CRD 1 ML/H CRN 1 ML/H ED 1 ML
     Route: 050
     Dates: start: 2021, end: 2021
  4. DUODOPA [Suspect]
     Active Substance: CARBIDOPA\LEVODOPA
     Indication: PARKINSON^S DISEASE
     Dosage: MD 3.0 ML; CRD 2.0 ML/H; CRN 2.0 ML/H; ED 1.0 ML
     Route: 050
     Dates: start: 20180809, end: 2021

REACTIONS (4)
  - Painful respiration [Recovering/Resolving]
  - Lung neoplasm malignant [Fatal]
  - Dehydration [Not Recovered/Not Resolved]
  - General physical health deterioration [Not Recovered/Not Resolved]

NARRATIVE: CASE EVENT DATE: 202104
